FAERS Safety Report 9528290 (Version 2)
Quarter: 2013Q4

REPORT INFORMATION
  Report Type: Spontaneous
  Country: US (occurrence: US)
  Receive Date: 20130917
  Receipt Date: 20131029
  Transmission Date: 20140711
  Serious: Yes (Hospitalization, Other)
  Sender: FDA-Public Use
  Company Number: US-PFIZER INC-2013267129

PATIENT
  Age: 41 Year
  Sex: Female
  Weight: 81.63 kg

DRUGS (5)
  1. LYRICA [Suspect]
     Indication: FIBROMYALGIA
     Dosage: 150 MG, 2X/DAY
     Route: 048
  2. CAFFEINE [Suspect]
     Dosage: UNK
  3. CELEXA [Suspect]
     Dosage: 20 MG, 1X/DAY
  4. BUSPAR [Suspect]
     Dosage: 15 MG, 2X/DAY
  5. PRILOSEC [Concomitant]
     Dosage: 20 MG, 1X/DAY
     Route: 048

REACTIONS (4)
  - Shock [Unknown]
  - Circulatory collapse [Unknown]
  - Respiratory failure [Unknown]
  - Respiratory arrest [Unknown]
